FAERS Safety Report 5978475-6 (Version None)
Quarter: 2008Q4

REPORT INFORMATION
  Report Type: 
  Country: None (occurrence: None)
  Receive Date: 20081204
  Receipt Date: 20081125
  Transmission Date: 20090506
  Serious: Yes (Hospitalization)
  Sender: FDA-Public Use
  Company Number: BR-ABBOTT-08P-020-0489587-00

PATIENT
  Sex: Female

DRUGS (4)
  1. VALPAKINE [Suspect]
     Indication: MENTAL DISORDER
     Route: 048
     Dates: start: 20070101
  2. CLOMIPRAMINE HCL [Concomitant]
     Indication: MENTAL DISORDER
     Route: 048
     Dates: start: 20070101
  3. PERICIAZINE [Concomitant]
     Indication: MENTAL DISORDER
     Dosage: 10-30 DROPS
     Route: 048
     Dates: start: 20070101, end: 20081101
  4. PROMETHAZINE HCL [Concomitant]
     Indication: MENTAL DISORDER
     Route: 065

REACTIONS (4)
  - EYE MOVEMENT DISORDER [None]
  - SPEECH DISORDER [None]
  - SWELLING [None]
  - WEIGHT INCREASED [None]
